FAERS Safety Report 8106431-0 (Version None)
Quarter: 2012Q1

REPORT INFORMATION
  Report Type: 
  Country: None (occurrence: None)
  Receive Date: 20120202
  Receipt Date: 20120125
  Transmission Date: 20120608
  Serious: Yes (Other)
  Sender: FDA-Public Use
  Company Number: US-JNJFOC-20120112067

PATIENT
  Age: 30 Year
  Sex: Male

DRUGS (4)
  1. ATIVAN [Concomitant]
     Indication: ANXIETY
     Route: 048
  2. INVEGA SUSTENNA [Suspect]
     Indication: SCHIZOAFFECTIVE DISORDER
     Route: 030
     Dates: start: 20110930
  3. EFFEXOR XR [Concomitant]
     Indication: DEPRESSION
     Route: 048
  4. TOPAMAX [Concomitant]
     Indication: DRUG THERAPY
     Route: 048

REACTIONS (1)
  - CONDITION AGGRAVATED [None]
